FAERS Safety Report 17520394 (Version 1)
Quarter: 2020Q1

REPORT INFORMATION
  Report Type: Spontaneous
  Country: US (occurrence: US)
  Receive Date: 20200310
  Receipt Date: 20200310
  Transmission Date: 20200409
  Serious: Yes (Life-Threatening, Hospitalization, Other)
  Sender: FDA-Public Use
  Company Number: US-AUROBINDO-AUR-APL-2020-010464

PATIENT
  Age: 69 Year
  Sex: Male

DRUGS (3)
  1. SOTALOL. [Concomitant]
     Active Substance: SOTALOL
     Indication: VENTRICULAR TACHYCARDIA
     Dosage: 80 MILLIGRAM, ONCE A DAY
     Route: 065
  2. LOPERAMIDE TABLET [Suspect]
     Active Substance: LOPERAMIDE
     Dosage: 2 DOSAGE FORM, ONCE A DAY
     Route: 048
  3. LOPERAMIDE TABLET [Suspect]
     Active Substance: LOPERAMIDE
     Indication: IRRITABLE BOWEL SYNDROME
     Dosage: UNK (AS NECESSARY)
     Route: 065

REACTIONS (4)
  - Ventricular arrhythmia [Recovered/Resolved]
  - Toxicity to various agents [Recovered/Resolved]
  - Torsade de pointes [Recovered/Resolved]
  - Cardiotoxicity [Recovered/Resolved]
